FAERS Safety Report 7470185-1 (Version None)
Quarter: 2011Q2

REPORT INFORMATION
  Report Type: 
  Country: None (occurrence: None)
  Receive Date: 20110510
  Receipt Date: 20110505
  Transmission Date: 20111010
  Serious: Yes (Other)
  Sender: FDA-Public Use
  Company Number: B0718065A

PATIENT
  Sex: Male

DRUGS (2)
  1. AVODART [Suspect]
     Route: 065
     Dates: start: 20101001
  2. ENALAPRIL [Concomitant]

REACTIONS (5)
  - EYE SWELLING [None]
  - SWELLING FACE [None]
  - LIP SWELLING [None]
  - ANGIOEDEMA [None]
  - PARAESTHESIA ORAL [None]
